FAERS Safety Report 8143917-7 (Version None)
Quarter: 2012Q1

REPORT INFORMATION
  Report Type: 
  Country: None (occurrence: None)
  Receive Date: 20120217
  Receipt Date: 20120208
  Transmission Date: 20120608
  Serious: Yes (Hospitalization)
  Sender: FDA-Public Use
  Company Number: IT-PFIZER INC-2012019164

PATIENT
  Age: 24 Year
  Sex: Female

DRUGS (3)
  1. IDARUBICIN HYDROCHLORIDE [Suspect]
     Indication: ACUTE MYELOMONOCYTIC LEUKAEMIA
     Dosage: 21.5 MG, DAILY
     Route: 042
     Dates: start: 20110721, end: 20110723
  2. ETOPOSIDE [Suspect]
     Indication: ACUTE MYELOMONOCYTIC LEUKAEMIA
     Dosage: 180 MG, 1X/DAY
     Route: 042
     Dates: start: 20110721, end: 20110725
  3. CYTARABINE [Suspect]
     Indication: ACUTE MYELOMONOCYTIC LEUKAEMIA
     Dosage: 100 MG, 2X/DAY
     Route: 042
     Dates: start: 20110721, end: 20110727

REACTIONS (1)
  - SINUS BRADYCARDIA [None]
